FAERS Safety Report 16446391 (Version 1)
Quarter: 2019Q2

REPORT INFORMATION
  Report Type: Spontaneous
  Country: CA (occurrence: CA)
  Receive Date: 20190618
  Receipt Date: 20190618
  Transmission Date: 20190711
  Serious: Yes (Other)
  Sender: FDA-Public Use
  Company Number: CA-B.I. PHARMACEUTICALS,INC./RIDGEFIELD-2019-BI-026444

PATIENT
  Sex: Male

DRUGS (1)
  1. MIRAPEX [Suspect]
     Active Substance: PRAMIPEXOLE DIHYDROCHLORIDE
     Indication: PARKINSON^S DISEASE
     Route: 065

REACTIONS (12)
  - Gambling [Unknown]
  - Hallucination [Unknown]
  - Personality change [Unknown]
  - Sudden onset of sleep [Unknown]
  - Anxiety [Unknown]
  - Compulsive shopping [Unknown]
  - Amnesia [Unknown]
  - Obsessive-compulsive personality disorder [Unknown]
  - Somnolence [Unknown]
  - Nightmare [Unknown]
  - Stress [Unknown]
  - Hypersexuality [Unknown]
